FAERS Safety Report 6059620-3 (Version None)
Quarter: 2009Q1

REPORT INFORMATION
  Report Type: 
  Country: None (occurrence: None)
  Receive Date: 20090130
  Receipt Date: 20090120
  Transmission Date: 20090719
  Serious: Yes (Hospitalization)
  Sender: FDA-Public Use
  Company Number: IL-ROCHE-609484

PATIENT
  Age: 23 Year
  Sex: Male

DRUGS (4)
  1. CELLCEPT [Suspect]
     Indication: GRAFT VERSUS HOST DISEASE
     Route: 065
     Dates: start: 20081231
  2. CYCLOSPORINE [Concomitant]
  3. RAPAMUNE [Concomitant]
  4. STEROID NOS [Concomitant]
     Dosage: UNSPECIFIED STEROID REGMEN

REACTIONS (3)
  - COMA [None]
  - PROGRESSIVE MULTIFOCAL LEUKOENCEPHALOPATHY [None]
  - RETINAL INFILTRATES [None]
